FAERS Safety Report 9149351 (Version 3)
Quarter: 2013Q2

REPORT INFORMATION
  Report Type: Report from Study
  Country: BG (occurrence: BG)
  Receive Date: 20130308
  Receipt Date: 20130429
  Transmission Date: 20140414
  Serious: Yes (Hospitalization)
  Sender: FDA-Public Use
  Company Number: 2013SP000566

PATIENT
  Age: 26 Year
  Sex: Male
  Weight: 80 kg

DRUGS (3)
  1. SM-13496 [Suspect]
     Indication: BIPOLAR DISORDER
     Route: 048
     Dates: start: 20130102, end: 20130220
  2. VALPROIC ACID [Concomitant]
     Indication: BIPOLAR DISORDER
     Route: 048
     Dates: start: 200708
  3. DIAZEPAM [Concomitant]
     Indication: INSOMNIA
     Route: 048
     Dates: start: 20130209, end: 20130209

REACTIONS (1)
  - Acute psychosis [Recovered/Resolved]
